FAERS Safety Report 8352744-7 (Version None)
Quarter: 2012Q2

REPORT INFORMATION
  Report Type: 
  Country: None (occurrence: None)
  Receive Date: 20120511
  Receipt Date: 20120504
  Transmission Date: 20120825
  Serious: Yes (Other)
  Sender: FDA-Public Use
  Company Number: US-ASTRAZENECA-2012SE26891

PATIENT
  Age: 72 Year
  Sex: Female

DRUGS (4)
  1. OMEPRAZOLE [Suspect]
     Route: 048
  2. NEXIUM [Suspect]
     Indication: REFLUX GASTRITIS
     Route: 048
  3. PRILOSEC OTC [Suspect]
     Route: 048
  4. GAVISCON [Concomitant]

REACTIONS (12)
  - OESOPHAGITIS [None]
  - OESOPHAGEAL IRRITATION [None]
  - MALAISE [None]
  - INTENTIONAL DRUG MISUSE [None]
  - DRUG INEFFECTIVE [None]
  - DYSPHONIA [None]
  - DISCOMFORT [None]
  - CEREBROVASCULAR ACCIDENT [None]
  - DIAPHRAGMATIC HERNIA [None]
  - GASTROOESOPHAGEAL REFLUX DISEASE [None]
  - STRESS [None]
  - PANIC REACTION [None]
